FAERS Safety Report 10009494 (Version 2)
Quarter: 2014Q1

REPORT INFORMATION
  Report Type: Spontaneous
  Country: US (occurrence: US)
  Receive Date: 20140313
  Receipt Date: 20140313
  Transmission Date: 20141002
  Serious: No
  Sender: FDA-Public Use
  Company Number: US-INCYTE CORPORATION-2012IN001258

PATIENT
  Age: 83 Year
  Sex: Male
  Weight: 74.38 kg

DRUGS (4)
  1. JAKAFI [Suspect]
     Indication: MYELOFIBROSIS
     Dosage: 25 MG, QD
     Route: 048
     Dates: start: 20120326
  2. HYDROXYUREA [Concomitant]
     Dosage: 500 MG, QD
     Route: 048
  3. ZAROXOLYN [Concomitant]
     Dosage: 5 MG, QD
     Dates: start: 20120913
  4. BABY ASPIRIN [Concomitant]

REACTIONS (1)
  - Migraine [Recovered/Resolved]
